FAERS Safety Report 7365829-9 (Version None)
Quarter: 2011Q1

REPORT INFORMATION
  Report Type: 
  Country: None (occurrence: None)
  Receive Date: 20110316
  Receipt Date: 20110316
  Transmission Date: 20110831
  Serious: Yes (Life-Threatening, Hospitalization, Other)
  Sender: FDA-Public Use
  Company Number: None

PATIENT
  Age: 57 Year
  Sex: Female
  Weight: 54 kg

DRUGS (2)
  1. AVANDIA [Suspect]
     Dosage: 3 TIMES A DAY
  2. AVANDAMET [Suspect]

REACTIONS (1)
  - CARDIAC FAILURE CONGESTIVE [None]
